FAERS Safety Report 15887604 (Version 1)
Quarter: 2019Q1

REPORT INFORMATION
  Report Type: Spontaneous
  Country: DE (occurrence: DE)
  Receive Date: 20190130
  Receipt Date: 20190130
  Transmission Date: 20190417
  Serious: Yes (Hospitalization)
  Sender: FDA-Public Use
  Company Number: DE-ACCORD-104128

PATIENT
  Age: 52 Year
  Sex: Male
  Weight: 67 kg

DRUGS (19)
  1. IRINOTECAN [Suspect]
     Active Substance: IRINOTECAN
     Indication: PRODUCT USED FOR UNKNOWN INDICATION
     Dosage: ACCORDING TO THE SCHEME, INJECTION / INFUSION SOLUTION
     Route: 042
  2. LEUCOVORIN. [Suspect]
     Active Substance: LEUCOVORIN
     Indication: PRODUCT USED FOR UNKNOWN INDICATION
     Dosage: ACCORDING TO THE SCHEME, INJECTION / INFUSION SOLUTION
     Route: 042
  3. DENOSUMAB [Concomitant]
     Active Substance: DENOSUMAB
     Dosage: 120 MG, SCHEME, INJECTION / INFUSION SOLUTION
     Route: 058
  4. BUPRENORPHINE. [Concomitant]
     Active Substance: BUPRENORPHINE
     Dosage: 70 MICROGRAM, SCHEME, TRANSDERMAL PATCH
     Route: 062
  5. PREDNISOLONE. [Concomitant]
     Active Substance: PREDNISOLONE
     Dosage: 30 MG, 1X IF NECESSARY, TABLETS
     Route: 048
  6. DEXAMETHASONE. [Concomitant]
     Active Substance: DEXAMETHASONE
     Dosage: 4 MG, 1-0-1-0, TABLETS
     Route: 048
  7. SAB SIMPLEX [Concomitant]
     Dosage: 1-1-1-0, SUSPENSION
     Route: 048
  8. METOCLOPRAMIDE. [Concomitant]
     Active Substance: METOCLOPRAMIDE
     Dosage: 10 MG, AS REQUIRED, TABLETS
     Route: 048
  9. LOPERAMIDE [Concomitant]
     Active Substance: LOPERAMIDE
     Dosage: 2 MG, AS REQUIRED, TABLETS
     Route: 048
  10. TEMGESIC [Concomitant]
     Active Substance: BUPRENORPHINE HYDROCHLORIDE
     Dosage: 0.4 MG, AS REQUIRED, MELTING TABLETS
     Route: 048
  11. NOVALGIN (METAMIZOLE SODIUM) [Concomitant]
     Active Substance: METAMIZOLE SODIUM
     Dosage: 40 GTT, 1-1-1-1, TROPFEN
     Route: 048
  12. ONDANSETRON [Concomitant]
     Active Substance: ONDANSETRON
     Dosage: 8 MG, 1-0-1, TABLETTEN
     Route: 048
  13. ELIQUIS [Concomitant]
     Active Substance: APIXABAN
     Dosage: STRENGTH 2,5MG, 2.5 MG, 1-0-1-0, TABLETS
     Route: 048
  14. KALIUM [Concomitant]
     Active Substance: POTASSIUM CHLORIDE
     Dosage: 8 MVAL, 1-0-1-0, CAPSULES
     Route: 048
  15. FLUOROURACIL. [Suspect]
     Active Substance: FLUOROURACIL
     Indication: PRODUCT USED FOR UNKNOWN INDICATION
     Dosage: SCHEME, INJECTION / INFUSION SOLUTION
     Route: 042
  16. KREON [Concomitant]
     Active Substance: PANCRELIPASE
     Dosage: 40000 IE, 1-1-1-0, ENTERIC-COATED PELLETS
     Route: 048
  17. PANTOZO [Concomitant]
     Dosage: STRENGTH 20 MG, 40 MG, 1-0-0-0, TABLETS
     Route: 048
  18. MOVICOL [Concomitant]
     Active Substance: POLYETHYLENE GLYCOL 3350\POTASSIUM CHLORIDE\SODIUM BICARBONATE\SODIUM CHLORIDE
     Dosage: AS REQUIRED, SACHET
     Route: 048
  19. CALCIMAGON-D3 [Concomitant]
     Active Substance: CALCIUM\CHOLECALCIFEROL
     Dosage: 1-0-0-0, CHEWABLE TABLETS
     Route: 048

REACTIONS (3)
  - Hypotension [Unknown]
  - Diarrhoea [Unknown]
  - Haematochezia [Unknown]
